FAERS Safety Report 15621979 (Version 5)
Quarter: 2019Q4

REPORT INFORMATION
  Report Type: Report from Study
  Country: JP (occurrence: JP)
  Receive Date: 20181115
  Receipt Date: 20191227
  Transmission Date: 20200122
  Serious: Yes (Hospitalization)
  Sender: FDA-Public Use
  Company Number: JP-PFIZER INC-2018267070

PATIENT
  Age: 70 Year
  Sex: Female
  Weight: 50 kg

DRUGS (23)
  1. FOLIAMIN TABLETS [Concomitant]
     Indication: PROPHYLAXIS
     Route: 048
  2. CYMBALTA [Concomitant]
     Active Substance: DULOXETINE HYDROCHLORIDE
     Indication: INSOMNIA
     Dosage: UNK
     Route: 048
     Dates: start: 20161220
  3. PREDONINE [Concomitant]
     Active Substance: PREDNISOLONE
     Indication: RHEUMATOID ARTHRITIS
     Dosage: 5 MG, DAILY
     Route: 048
     Dates: end: 20160119
  4. PREDONINE [Concomitant]
     Active Substance: PREDNISOLONE
     Dosage: 7 MG, DAILY
     Route: 048
     Dates: start: 20160927, end: 20170515
  5. PREDONINE [Concomitant]
     Active Substance: PREDNISOLONE
     Dosage: 8 MG, DAILY
     Route: 048
     Dates: start: 20160706, end: 20160926
  6. CYTOTEC [Concomitant]
     Active Substance: MISOPROSTOL
     Route: 048
  7. FUROSEMIDE. [Concomitant]
     Active Substance: FUROSEMIDE
     Indication: CARDIAC FAILURE CONGESTIVE
     Dosage: UNK
     Route: 048
     Dates: start: 20160706
  8. XELJANZ [Suspect]
     Active Substance: TOFACITINIB CITRATE
     Dosage: 5 MG, 2X/DAY
     Route: 048
     Dates: start: 20160830, end: 20180110
  9. PREDONINE [Concomitant]
     Active Substance: PREDNISOLONE
     Dosage: 10 MG, DAILY
     Route: 048
     Dates: start: 20160413, end: 20160524
  10. PREDNISOLONE. [Concomitant]
     Active Substance: PREDNISOLONE
     Dosage: 6 MG, DAILY
     Route: 048
     Dates: end: 20171211
  11. PREDNISOLONE. [Concomitant]
     Active Substance: PREDNISOLONE
     Dosage: 5 MG, DAILY
     Route: 048
     Dates: start: 20171212
  12. POLAPREZINC [Concomitant]
     Active Substance: POLAPREZINC
     Route: 048
  13. PREDONINE [Concomitant]
     Active Substance: PREDNISOLONE
     Dosage: 6 MG, DAILY
     Route: 048
     Dates: start: 20170516
  14. ZOLPIDEM TARTRATE. [Concomitant]
     Active Substance: ZOLPIDEM TARTRATE
     Indication: INSOMNIA
     Dosage: UNK
     Route: 048
     Dates: start: 20160927
  15. PREDONINE [Concomitant]
     Active Substance: PREDNISOLONE
     Dosage: 11 MG, DAILY
     Route: 048
     Dates: start: 20160525, end: 20160705
  16. LOXOPROFEN [Concomitant]
     Active Substance: LOXOPROFEN
     Route: 048
  17. SPIRONOLACTONE. [Concomitant]
     Active Substance: SPIRONOLACTONE
     Indication: CARDIAC FAILURE CONGESTIVE
     Dosage: UNK
     Route: 048
     Dates: start: 20160803
  18. XELJANZ [Suspect]
     Active Substance: TOFACITINIB CITRATE
     Indication: RHEUMATOID ARTHRITIS
     Dosage: 5 MG, 2X/DAY
     Route: 048
     Dates: start: 20150520, end: 20150616
  19. METHOTREXATE SODIUM. [Suspect]
     Active Substance: METHOTREXATE SODIUM
     Indication: RHEUMATOID ARTHRITIS
     Dosage: 6 MG, WEEKLY
     Dates: end: 20180110
  20. PREDONINE [Concomitant]
     Active Substance: PREDNISOLONE
     Dosage: 10 MG, DAILY
     Route: 048
     Dates: start: 20160120, end: 20160301
  21. PREDONINE [Concomitant]
     Active Substance: PREDNISOLONE
     Dosage: 15 MG, DAILY
     Route: 048
     Dates: start: 20160302, end: 20160412
  22. NEXIUM [Concomitant]
     Active Substance: ESOMEPRAZOLE MAGNESIUM
     Route: 048
  23. MAGNESIUM OXIDE. [Concomitant]
     Active Substance: MAGNESIUM OXIDE
     Route: 048

REACTIONS (1)
  - Herpes zoster disseminated [Recovering/Resolving]

NARRATIVE: CASE EVENT DATE: 20180110
